FAERS Safety Report 7360557 (Version 2)
Quarter: 2013Q2

REPORT INFORMATION
  Report Type: Spontaneous
  Country: US (occurrence: US)
  Receive Date: 20100420
  Receipt Date: 20130625
  Transmission Date: 20140414
  Serious: Yes (Death, Hospitalization, Other)
  Sender: FDA-Public Use
  Company Number: US-PFIZER INC-2010045295

PATIENT
  Age: 71 Year
  Sex: Female

DRUGS (1)
  1. AMLODIPINE BESILATE [Suspect]
     Dosage: 135 MG, SINGLE
     Route: 048

REACTIONS (7)
  - Intentional overdose [Fatal]
  - Oliguria [Fatal]
  - Respiratory failure [Fatal]
  - Acidosis [Not Recovered/Not Resolved]
  - Pulmonary oedema [Not Recovered/Not Resolved]
  - Hypotension [Recovered/Resolved]
  - Mental impairment [Not Recovered/Not Resolved]
